FAERS Safety Report 19212810 (Version 1)
Quarter: 2021Q2

REPORT INFORMATION
  Report Type: Spontaneous
  Country: US (occurrence: US)
  Receive Date: 20210504
  Receipt Date: 20210504
  Transmission Date: 20210717
  Serious: No
  Sender: FDA-Public Use
  Company Number: US-LANNETT COMPANY, INC.-US-2020LAN000314

PATIENT
  Sex: Male

DRUGS (1)
  1. RIFAMPIN. [Suspect]
     Active Substance: RIFAMPIN
     Indication: LATENT TUBERCULOSIS
     Dosage: 600 MG, QD
     Route: 048
     Dates: start: 20170925, end: 201812

REACTIONS (3)
  - Renal function test abnormal [Recovered/Resolved]
  - Semen discolouration [Not Recovered/Not Resolved]
  - Liver function test increased [Recovered/Resolved]
